FAERS Safety Report 17470265 (Version 1)
Quarter: 2020Q1

REPORT INFORMATION
  Report Type: Spontaneous
  Country: US (occurrence: US)
  Receive Date: 20200227
  Receipt Date: 20200227
  Transmission Date: 20200409
  Serious: Yes (Disabling, Other)
  Sender: FDA-Public Use
  Company Number: US-009507513-2002USA008493

PATIENT
  Age: 78 Year
  Sex: Female

DRUGS (5)
  1. CLONIDINE. [Concomitant]
     Active Substance: CLONIDINE
  2. ZINPLAVA [Suspect]
     Active Substance: BEZLOTOXUMAB
     Indication: CLOSTRIDIUM DIFFICILE INFECTION
     Dosage: 10 MILLIGRAM/KILOGRAM, ONCE
     Route: 042
     Dates: start: 20190820
  3. FLUCONAZOLE. [Concomitant]
     Active Substance: FLUCONAZOLE
  4. AMLODIPINE [Concomitant]
     Active Substance: AMLODIPINE BESYLATE
  5. ENOXAPARIN SODIUM. [Concomitant]
     Active Substance: ENOXAPARIN SODIUM

REACTIONS (1)
  - Clostridium difficile infection [Not Recovered/Not Resolved]

NARRATIVE: CASE EVENT DATE: 20200216
